FAERS Safety Report 19879718 (Version 1)
Quarter: 2021Q3

REPORT INFORMATION
  Report Type: Spontaneous
  Country: CA (occurrence: CA)
  Receive Date: 20210924
  Receipt Date: 20210924
  Transmission Date: 20211014
  Serious: Yes (Life-Threatening, Disabling, Other)
  Sender: FDA-Public Use
  Company Number: CA-PFIZER INC-202101224441

PATIENT
  Age: 3 Year
  Sex: Female
  Weight: 17 kg

DRUGS (30)
  1. METHOTREXATE SODIUM. [Suspect]
     Active Substance: METHOTREXATE SODIUM
     Dosage: 12 MG
     Route: 037
  2. VANCOMYCIN [Concomitant]
     Active Substance: VANCOMYCIN
  3. METHOTREXATE SODIUM. [Suspect]
     Active Substance: METHOTREXATE SODIUM
     Indication: ACUTE LYMPHOCYTIC LEUKAEMIA
     Dosage: 12 MG, ONCE
     Route: 037
  4. VINCRISTINE SULFATE. [Suspect]
     Active Substance: VINCRISTINE SULFATE
     Indication: ACUTE LYMPHOCYTIC LEUKAEMIA
     Dosage: 1.1 MG
     Route: 040
  5. DEXAMETHASONE. [Concomitant]
     Active Substance: DEXAMETHASONE
  6. MYCAMINE [Concomitant]
     Active Substance: MICAFUNGIN SODIUM
  7. CYTARABINE. [Suspect]
     Active Substance: CYTARABINE
     Dosage: 50 MG, 1X/DAY
     Route: 058
  8. CYCLOPHOSPHAMIDE. [Suspect]
     Active Substance: CYCLOPHOSPHAMIDE
     Indication: ACUTE LYMPHOCYTIC LEUKAEMIA
     Dosage: 700 MG
     Route: 042
  9. PEG?L?ASPARAGINASE [Suspect]
     Active Substance: PEGASPARGASE
     Indication: ACUTE LYMPHOCYTIC LEUKAEMIA
     Dosage: 1800 IU
     Route: 042
  10. ALLOPURINOL. [Concomitant]
     Active Substance: ALLOPURINOL
  11. OLANZAPINE. [Concomitant]
     Active Substance: OLANZAPINE
  12. DOXORUBICIN HYDROCHLORIDE INJECTION [Suspect]
     Active Substance: DOXORUBICIN HYDROCHLORIDE
     Indication: ACUTE LYMPHOCYTIC LEUKAEMIA
     Dosage: 22 MG
     Route: 040
  13. ACETAMINOPHEN. [Concomitant]
     Active Substance: ACETAMINOPHEN
     Dosage: 50 MG, 1X/DAY
     Route: 058
  14. CEFTAZIDIME. [Concomitant]
     Active Substance: CEFTAZIDIME
  15. VINCRISTINE SULFATE. [Suspect]
     Active Substance: VINCRISTINE SULFATE
     Dosage: 1.1 MG
     Route: 040
  16. AMLODIPINE [Concomitant]
     Active Substance: AMLODIPINE BESYLATE
     Route: 065
  17. CHOLECALCIFEROL [Concomitant]
     Active Substance: CHOLECALCIFEROL
  18. MELATONINE [Concomitant]
     Active Substance: MELATONIN
  19. PIPERACILLIN/TAZOBACTAM [Concomitant]
     Active Substance: PIPERACILLIN SODIUM\TAZOBACTAM SODIUM
  20. HYDROCORTISONE. [Suspect]
     Active Substance: HYDROCORTISONE
     Indication: ACUTE LYMPHOCYTIC LEUKAEMIA
     Dosage: 15 MG
     Route: 037
  21. MESNA. [Concomitant]
     Active Substance: MESNA
  22. RISPERIDONE. [Concomitant]
     Active Substance: RISPERIDONE
  23. CYTARABINE. [Suspect]
     Active Substance: CYTARABINE
     Indication: ACUTE LYMPHOCYTIC LEUKAEMIA
     Dosage: 40 MG
     Route: 037
  24. MERCAPTOPURINE. [Suspect]
     Active Substance: MERCAPTOPURINE
     Indication: ACUTE LYMPHOCYTIC LEUKAEMIA
     Dosage: 37.5 MG, 1X/DAY
     Route: 048
  25. LANSOPRAZOLE. [Concomitant]
     Active Substance: LANSOPRAZOLE
  26. ONDANSETRON [Concomitant]
     Active Substance: ONDANSETRON
  27. POLYETHYLENE GLYCOL;PROPYLENE GLYCOL [Concomitant]
     Active Substance: POLYETHYLENE GLYCOL\PROPYLENE GLYCOL
  28. ALTEPLASE. [Concomitant]
     Active Substance: ALTEPLASE
  29. LORAZEPAM. [Concomitant]
     Active Substance: LORAZEPAM
  30. PENTAMIDINE ISETHIONATE. [Concomitant]
     Active Substance: PENTAMIDINE ISETHIONATE

REACTIONS (4)
  - Febrile neutropenia [Unknown]
  - Vocal cord paralysis [Unknown]
  - Neuropathy peripheral [Unknown]
  - Aplastic anaemia [Unknown]
